FAERS Safety Report 16285313 (Version 1)
Quarter: 2019Q2

REPORT INFORMATION
  Report Type: Spontaneous
  Country: US (occurrence: US)
  Receive Date: 20190506
  Receipt Date: 20190506
  Transmission Date: 20190711
  Serious: Yes (Other)
  Sender: FDA-Public Use
  Company Number: None

PATIENT
  Age: 26 Month
  Sex: Female
  Weight: 19.35 kg

DRUGS (7)
  1. ALBUTEROL. [Concomitant]
     Active Substance: ALBUTEROL
  2. OFLOXACIN 0.3% [Concomitant]
  3. INHALER [Concomitant]
     Active Substance: UNSPECIFIED INGREDIENT
  4. LORATADINE. [Concomitant]
     Active Substance: LORATADINE
  5. SIMETHICONE (DIMETHICONE) [Concomitant]
     Active Substance: DIMETHICONE
  6. NEBULIZOR [Concomitant]
  7. PEG 3350 [Suspect]
     Active Substance: POLYETHYLENE GLYCOL 3350
     Indication: CONSTIPATION
     Dates: start: 20180110, end: 20190502

REACTIONS (5)
  - Dysphemia [None]
  - Pain [None]
  - Sensory disturbance [None]
  - Aggression [None]
  - Screaming [None]

NARRATIVE: CASE EVENT DATE: 20180201
